FAERS Safety Report 8399050-2 (Version None)
Quarter: 2012Q2

REPORT INFORMATION
  Report Type: 
  Country: None (occurrence: None)
  Receive Date: 20120525
  Receipt Date: 20120523
  Transmission Date: 20120825
  Serious: Yes (Death)
  Sender: FDA-Public Use
  Company Number: ADR-2012-00763

PATIENT
  Age: 58 Year

DRUGS (1)
  1. LIORESAL [Suspect]
     Dosage: 899.9 MCG/DAY

REACTIONS (6)
  - COORDINATION ABNORMAL [None]
  - CONCOMITANT DISEASE PROGRESSION [None]
  - PALLOR [None]
  - TACHYCARDIA [None]
  - CONCOMITANT DISEASE AGGRAVATED [None]
  - RESPIRATORY DISORDER [None]
